FAERS Safety Report 9781010 (Version 1)
Quarter: 2013Q4

REPORT INFORMATION
  Report Type: Spontaneous
  Country: DK (occurrence: DK)
  Receive Date: 20131224
  Receipt Date: 20131224
  Transmission Date: 20140711
  Serious: Yes (Life-Threatening, Hospitalization)
  Sender: FDA-Public Use
  Company Number: DK-NOVOPROD-395949

PATIENT
  Age: 47 Year
  Sex: Female

DRUGS (8)
  1. VICTOZA [Suspect]
     Indication: TYPE 2 DIABETES MELLITUS
     Dosage: 0.3 ML, QD , 6 MG/ML
     Route: 058
     Dates: start: 20100201, end: 20131214
  2. METFORMIN ACTAVIS [Concomitant]
  3. LANSOPRAZOL ACTAVIS [Concomitant]
  4. TOVIAZ [Concomitant]
  5. TRIATEC                            /00116401/ [Concomitant]
  6. PINEX                              /00020001/ [Concomitant]
  7. IBUPROFEN ACTAVIS [Concomitant]
  8. IMOCLONE [Concomitant]

REACTIONS (4)
  - Disorientation [Recovering/Resolving]
  - Renal failure [Recovering/Resolving]
  - Pancreatitis acute [Recovering/Resolving]
  - Diabetes mellitus inadequate control [Recovering/Resolving]
